FAERS Safety Report 17525905 (Version 1)
Quarter: 2020Q1

REPORT INFORMATION
  Report Type: Spontaneous
  Country: US (occurrence: US)
  Receive Date: 20200310
  Receipt Date: 20200310
  Transmission Date: 20200409
  Serious: No
  Sender: FDA-Public Use
  Company Number: US-TEVA-2020-US-1197059

PATIENT

DRUGS (1)
  1. LIDOCAINE PATCH 5 % ACTAVIS [Suspect]
     Active Substance: LIDOCAINE
     Route: 062

REACTIONS (2)
  - Application site hypersensitivity [Unknown]
  - Application site rash [Unknown]
